FAERS Safety Report 7050696-3 (Version None)
Quarter: 2010Q4

REPORT INFORMATION
  Report Type: 
  Country: None (occurrence: None)
  Receive Date: 20101019
  Receipt Date: 20101011
  Transmission Date: 20110411
  Serious: Yes (Hospitalization)
  Sender: FDA-Public Use
  Company Number: US-BIOGENIDEC-2010BI033030

PATIENT
  Age: 32 Year
  Sex: Female

DRUGS (2)
  1. TYSABRI [Suspect]
     Indication: MULTIPLE SCLEROSIS
     Route: 042
     Dates: start: 20100310, end: 20100501
  2. TYSABRI [Suspect]
     Route: 042
     Dates: start: 20100101

REACTIONS (2)
  - GENERAL SYMPTOM [None]
  - MEDICAL DEVICE REMOVAL [None]
